APPROVED DRUG PRODUCT: EDARAVONE
Active Ingredient: EDARAVONE
Strength: 30MG/100ML (0.3MG/ML)
Dosage Form/Route: SOLUTION;INTRAVENOUS
Application: A216199 | Product #001 | TE Code: AP
Applicant: GLAND PHARMA LTD
Approved: May 6, 2024 | RLD: No | RS: Yes | Type: RX